FAERS Safety Report 9359904 (Version 1)
Quarter: 2013Q2

REPORT INFORMATION
  Report Type: Spontaneous
  Country: US (occurrence: US)
  Receive Date: 20130621
  Receipt Date: 20130621
  Transmission Date: 20140414
  Serious: No
  Sender: FDA-Public Use
  Company Number: US-US-EMD SERONO, INC.-7132812

PATIENT
  Age: 41 Year
  Sex: Female
  Weight: 111 kg

DRUGS (2)
  1. REBIF [Suspect]
     Indication: PRODUCT USED FOR UNKNOWN INDICATION
     Route: 058
  2. REBIF [Suspect]
     Route: 058
     Dates: end: 20120502

REACTIONS (2)
  - Dyspnoea [Recovered/Resolved]
  - Influenza like illness [Recovered/Resolved]
